FAERS Safety Report 5436279-7 (Version None)
Quarter: 2007Q3

REPORT INFORMATION
  Report Type: 
  Country: None (occurrence: None)
  Receive Date: 20070831
  Receipt Date: 20070820
  Transmission Date: 20080115
  Serious: Yes (Death, Hospitalization)
  Sender: FDA-Public Use
  Company Number: US-AMGEN-US236524

PATIENT
  Sex: Male

DRUGS (11)
  1. PANITUMUMAB [Suspect]
     Indication: COLORECTAL CANCER
     Route: 042
     Dates: start: 20070319, end: 20070625
  2. PANITUMUMAB [Suspect]
     Route: 042
     Dates: start: 20070626, end: 20070725
  3. IRINOTECAN HCL [Concomitant]
     Route: 042
  4. PERCOCET [Concomitant]
     Route: 065
  5. RISPERDAL [Concomitant]
     Route: 065
  6. ATIVAN [Concomitant]
     Route: 065
  7. PREVACID [Concomitant]
     Route: 065
  8. EFFEXOR [Concomitant]
     Route: 065
  9. PROCRIT [Concomitant]
     Route: 065
  10. 5-FU [Concomitant]
     Route: 042
  11. LEUCOVORIN CALCIUM [Concomitant]
     Route: 042

REACTIONS (26)
  - ASCITES [None]
  - BLOOD ALBUMIN DECREASED [None]
  - BLOOD ALKALINE PHOSPHATASE INCREASED [None]
  - BLOOD SODIUM DECREASED [None]
  - BLOOD UREA INCREASED [None]
  - CARDIO-RESPIRATORY ARREST [None]
  - DEHYDRATION [None]
  - HAEMATOCRIT DECREASED [None]
  - HAEMOGLOBIN DECREASED [None]
  - HYPOTENSION [None]
  - INTESTINAL OBSTRUCTION [None]
  - MALIGNANT NEOPLASM PROGRESSION [None]
  - METASTASES TO LIVER [None]
  - METASTASES TO LUNG [None]
  - METASTASES TO PERITONEUM [None]
  - NEUTROPENIA [None]
  - OBSTRUCTION GASTRIC [None]
  - ORAL INTAKE REDUCED [None]
  - PCO2 DECREASED [None]
  - PLATELET COUNT INCREASED [None]
  - PNEUMONIA [None]
  - POST PROCEDURAL COMPLICATION [None]
  - PYREXIA [None]
  - RESPIRATORY FAILURE [None]
  - RESPIRATORY RATE INCREASED [None]
  - RETROPERITONEAL LYMPHADENOPATHY [None]
